FAERS Safety Report 16160571 (Version 1)
Quarter: 2019Q2

REPORT INFORMATION
  Report Type: Report from Study
  Country: None (occurrence: US)
  Receive Date: 20190405
  Receipt Date: 20190405
  Transmission Date: 20190711
  Serious: Yes (Hospitalization, Other)
  Sender: FDA-Public Use
  Company Number: US-ABBVIE-19K-163-2697072-00

PATIENT
  Age: 54 Year
  Sex: Male
  Weight: 113.5 kg

DRUGS (1)
  1. MAVYRET [Suspect]
     Active Substance: GLECAPREVIR\PIBRENTASVIR
     Indication: CHRONIC HEPATITIS C
     Route: 048
     Dates: start: 201902

REACTIONS (5)
  - Incisional drainage [Unknown]
  - Cholecystectomy [Unknown]
  - Pneumonia [Recovering/Resolving]
  - Liver disorder [Unknown]
  - Pulmonary artery dilatation [Unknown]

NARRATIVE: CASE EVENT DATE: 2019
